FAERS Safety Report 15062180 (Version 1)
Quarter: 2018Q2

REPORT INFORMATION
  Report Type: Spontaneous
  Country: TW (occurrence: TW)
  Receive Date: 20180625
  Receipt Date: 20180625
  Transmission Date: 20180711
  Serious: Yes (Death)
  Sender: FDA-Public Use
  Company Number: TW-BEH-2018091985

PATIENT
  Age: 52 Year
  Sex: Male

DRUGS (1)
  1. HUMAN IMMUNOGLOBULIN IV BMW (INN) [Suspect]
     Active Substance: HUMAN IMMUNOGLOBULIN G
     Indication: ENCEPHALITIS JAPANESE B
     Route: 042

REACTIONS (1)
  - Drug ineffective for unapproved indication [Fatal]
